FAERS Safety Report 18876639 (Version 1)
Quarter: 2021Q1

REPORT INFORMATION
  Report Type: Spontaneous
  Country: US (occurrence: US)
  Receive Date: 20210211
  Receipt Date: 20210211
  Transmission Date: 20210420
  Serious: No
  Sender: FDA-Public Use
  Company Number: US-SA-2021SA039145

PATIENT
  Sex: Female

DRUGS (21)
  1. KEVZARA [Suspect]
     Active Substance: SARILUMAB
     Dosage: UNK
  2. KEVZARA [Suspect]
     Active Substance: SARILUMAB
     Indication: OSTEOARTHRITIS
     Dosage: 200 MG, QOW
     Route: 058
     Dates: start: 201909
  3. CHLORTHALIDONE. [Concomitant]
     Active Substance: CHLORTHALIDONE
  4. PROZAC [Concomitant]
     Active Substance: FLUOXETINE HYDROCHLORIDE
  5. CLINDAMICIN [CLINDAMYCIN PHOSPHATE] [Concomitant]
  6. COZAAR [Concomitant]
     Active Substance: LOSARTAN POTASSIUM
  7. AMOXICILLIN. [Concomitant]
     Active Substance: AMOXICILLIN
  8. FLUCONAZOLE. [Concomitant]
     Active Substance: FLUCONAZOLE
  9. HYDROCODONE/ACETAMINOPHEN [Concomitant]
     Active Substance: ACETAMINOPHEN\HYDROCODONE
  10. VITAMIN D [VITAMIN D NOS] [Concomitant]
     Active Substance: VITAMIN D NOS
  11. FUROSEMIDE. [Concomitant]
     Active Substance: FUROSEMIDE
  12. NORCO [Concomitant]
     Active Substance: ACETAMINOPHEN\HYDROCODONE BITARTRATE
  13. PREDNISONE. [Concomitant]
     Active Substance: PREDNISONE
  14. METFORMIN HCL [Concomitant]
     Active Substance: METFORMIN HYDROCHLORIDE
  15. HYDROXYCHLOROQUINE SULFATE. [Concomitant]
     Active Substance: HYDROXYCHLOROQUINE SULFATE
  16. ATENOLOL. [Concomitant]
     Active Substance: ATENOLOL
  17. BACTRIM [Concomitant]
     Active Substance: SULFAMETHOXAZOLE\TRIMETHOPRIM
  18. NITROFURANTOIN. [Concomitant]
     Active Substance: NITROFURANTOIN
  19. TRAZODONE HYDROCHLORIDE. [Concomitant]
     Active Substance: TRAZODONE HYDROCHLORIDE
  20. AMITRIPTYLINE HCL [Concomitant]
     Active Substance: AMITRIPTYLINE
  21. SULFASALAZINE. [Concomitant]
     Active Substance: SULFASALAZINE

REACTIONS (2)
  - White blood cell count decreased [Not Recovered/Not Resolved]
  - Product use in unapproved indication [Unknown]
